FAERS Safety Report 25749940 (Version 2)
Quarter: 2025Q3

REPORT INFORMATION
  Report Type: Spontaneous
  Country: JP (occurrence: JP)
  Receive Date: 20250902
  Receipt Date: 20250926
  Transmission Date: 20251021
  Serious: Yes (Other)
  Sender: AMGEN
  Company Number: JP-AMGEN-JPNSP2025170544

PATIENT
  Age: 52 Year
  Sex: Female

DRUGS (3)
  1. MVASI [Suspect]
     Active Substance: BEVACIZUMAB-AWWB
     Indication: Breast cancer
     Route: 040
  2. CYCLOPHOSPHAMIDE\EPIRUBICIN HYDROCHLORIDE\FLUOROURACIL [Concomitant]
     Active Substance: CYCLOPHOSPHAMIDE\EPIRUBICIN HYDROCHLORIDE\FLUOROURACIL
     Indication: Breast cancer
  3. PACLITAXEL [Concomitant]
     Active Substance: PACLITAXEL
     Indication: Breast cancer

REACTIONS (2)
  - Metastases to skin [Unknown]
  - Metastases to bone [Unknown]
